FAERS Safety Report 7207572-2 (Version None)
Quarter: 2010Q4

REPORT INFORMATION
  Report Type: 
  Country: None (occurrence: None)
  Receive Date: 20101221
  Receipt Date: 20101214
  Transmission Date: 20110411
  Serious: Yes (Other)
  Sender: FDA-Public Use
  Company Number: A0882621A

PATIENT
  Age: 32 Year
  Sex: Female

DRUGS (1)
  1. UREA HYDROGEN PEROXIDE (FORMULATION UNKNOWN) [Suspect]

REACTIONS (11)
  - DEAFNESS UNILATERAL [None]
  - EAR PAIN [None]
  - EAR PRURITUS [None]
  - HEADACHE [None]
  - MALAISE [None]
  - OROPHARYNGEAL PAIN [None]
  - PRODUCT QUALITY ISSUE [None]
  - SINUS HEADACHE [None]
  - SINUSITIS [None]
  - TINNITUS [None]
  - UNEVALUABLE EVENT [None]
